FAERS Safety Report 14855963 (Version 1)
Quarter: 2018Q2

REPORT INFORMATION
  Report Type: Spontaneous
  Country: US (occurrence: US)
  Receive Date: 20180507
  Receipt Date: 20180507
  Transmission Date: 20180711
  Serious: Yes (Other)
  Sender: FDA-Public Use
  Company Number: US-GLAXOSMITHKLINE-US2018077551

PATIENT
  Sex: Male

DRUGS (2)
  1. LANTUS [Concomitant]
     Active Substance: INSULIN GLARGINE
  2. TANZEUM [Suspect]
     Active Substance: ALBIGLUTIDE
     Indication: DIABETES MELLITUS
     Dosage: 50 MG, WE
     Route: 058

REACTIONS (8)
  - Confusional state [Unknown]
  - Vertigo [Unknown]
  - Diarrhoea [Unknown]
  - Suicidal ideation [Unknown]
  - Balance disorder [Unknown]
  - Mood altered [Unknown]
  - Irritability [Unknown]
  - Anger [Unknown]
